FAERS Safety Report 6749062-7 (Version None)
Quarter: 2010Q2

REPORT INFORMATION
  Report Type: 
  Country: None (occurrence: None)
  Receive Date: 20100601
  Receipt Date: 20100524
  Transmission Date: 20101027
  Serious: Yes (Other)
  Sender: FDA-Public Use
  Company Number: CHPA2010US09078

PATIENT
  Age: 65 Year
  Sex: Female

DRUGS (1)
  1. TRANSDERM SCOP [Suspect]
     Dosage: UNK, UNK
     Route: 062

REACTIONS (6)
  - CONFUSIONAL STATE [None]
  - DISORIENTATION [None]
  - DIZZINESS [None]
  - MYDRIASIS [None]
  - OVERDOSE [None]
  - SPEECH DISORDER [None]
